FAERS Safety Report 20774225 (Version 6)
Quarter: 2025Q3

REPORT INFORMATION
  Report Type: Spontaneous
  Country: JP (occurrence: JP)
  Receive Date: 20220502
  Receipt Date: 20250810
  Transmission Date: 20251020
  Serious: Yes (Life-Threatening, Other)
  Sender: ALEXION PHARMACEUTICALS
  Company Number: 2022A109845

PATIENT
  Age: 72 Year
  Sex: Male
  Weight: 44 kg

DRUGS (16)
  1. LYNPARZA [Suspect]
     Active Substance: OLAPARIB
     Indication: Pancreatic carcinoma
     Dosage: 300 MILLIGRAM, BID
     Dates: start: 20210709, end: 20211101
  2. LYNPARZA [Suspect]
     Active Substance: OLAPARIB
     Dosage: 250 MILLIGRAM, BID
     Dates: start: 20220107
  3. LYNPARZA [Suspect]
     Active Substance: OLAPARIB
     Indication: Pancreatic carcinoma
     Dates: start: 20210709, end: 20211101
  4. LYNPARZA [Suspect]
     Active Substance: OLAPARIB
     Dates: start: 20220107
  5. XARELTO [Concomitant]
     Active Substance: RIVAROXABAN
     Dosage: 15 MILLIGRAM, QD
  6. XARELTO [Concomitant]
     Active Substance: RIVAROXABAN
  7. MIYA-BM [Concomitant]
     Active Substance: CLOSTRIDIUM BUTYRICUM SPORES STRAIN M-55
     Dosage: 3 GRAM, TID
  8. MIYA-BM [Concomitant]
     Active Substance: CLOSTRIDIUM BUTYRICUM SPORES STRAIN M-55
  9. PANCRELIPASE [Concomitant]
     Active Substance: PANCRELIPASE
     Dosage: 150 MILLIGRAM, TID
  10. PANCRELIPASE [Concomitant]
     Active Substance: PANCRELIPASE
  11. VONOPRAZAN FUMARATE [Concomitant]
     Active Substance: VONOPRAZAN FUMARATE
     Dosage: 20 MILLIGRAM, QD
  12. VONOPRAZAN FUMARATE [Concomitant]
     Active Substance: VONOPRAZAN FUMARATE
  13. METHYLCOBALAMIN [Concomitant]
     Active Substance: METHYLCOBALAMIN
     Dosage: 1500 MICROGRAM, TID
  14. METHYLCOBALAMIN [Concomitant]
     Active Substance: METHYLCOBALAMIN
  15. DESMOPRESSIN ACETATE [Concomitant]
     Active Substance: DESMOPRESSIN ACETATE
     Dosage: 25 MICROGRAM, QD
  16. DESMOPRESSIN ACETATE [Concomitant]
     Active Substance: DESMOPRESSIN ACETATE

REACTIONS (4)
  - Mechanical ileus [Unknown]
  - Ileus [Not Recovered/Not Resolved]
  - Hernia [Unknown]
  - Malaise [Not Recovered/Not Resolved]

NARRATIVE: CASE EVENT DATE: 20211101
